FAERS Safety Report 5975335-1 (Version None)
Quarter: 2008Q4

REPORT INFORMATION
  Report Type: 
  Country: None (occurrence: None)
  Receive Date: 20081202
  Receipt Date: 20080208
  Transmission Date: 20090506
  Serious: No
  Sender: FDA-Public Use
  Company Number: US-AMGEN-KDL262923

PATIENT
  Sex: Female

DRUGS (2)
  1. ENBREL [Suspect]
     Indication: RHEUMATOID ARTHRITIS
     Route: 058
     Dates: start: 20080108
  2. ARAVA [Concomitant]
     Route: 048
     Dates: start: 20000101

REACTIONS (2)
  - HAEMOGLOBIN DECREASED [None]
  - STOMATITIS [None]
